FAERS Safety Report 4757151-1 (Version None)
Quarter: 2005Q3

REPORT INFORMATION
  Report Type: 
  Country: None (occurrence: None)
  Receive Date: 20050829
  Receipt Date: 20050822
  Transmission Date: 20060218
  Serious: Yes (Disabling, Other)
  Sender: FDA-Public Use
  Company Number: 2005118476

PATIENT
  Age: 51 Year
  Sex: Female
  Weight: 90.7194 kg

DRUGS (5)
  1. LIPITOR [Suspect]
     Indication: BLOOD CHOLESTEROL INCREASED
     Dates: start: 20040801, end: 20050211
  2. HYDROCHLOROTHIAZIDE [Suspect]
     Indication: FLUID RETENTION
     Dates: start: 20040901
  3. HYDROCHLOROTHIAZIDE [Suspect]
     Indication: LIMB DISCOMFORT
     Dates: start: 20040901
  4. LEVOTHYROXINE SODIUM [Concomitant]
  5. BISOPROLOL (BISOPROLOL) [Concomitant]

REACTIONS (4)
  - FATIGUE [None]
  - FLUID RETENTION [None]
  - SCIATICA [None]
  - WEIGHT INCREASED [None]
